FAERS Safety Report 7067638-7 (Version None)
Quarter: 2010Q4

REPORT INFORMATION
  Report Type: 
  Country: None (occurrence: None)
  Receive Date: 20101028
  Receipt Date: 20101025
  Transmission Date: 20110411
  Serious: Yes (Hospitalization)
  Sender: FDA-Public Use
  Company Number: US-ROXANE LABORATORIES, INC.-2010-RO-01418RO

PATIENT
  Sex: Female
  Weight: 49 kg

DRUGS (4)
  1. PREDNISONE [Suspect]
     Dosage: 5 MG
     Dates: end: 20100521
  2. BLINDED STUDY THERAPY [Suspect]
     Indication: MYELOFIBROSIS
     Route: 048
     Dates: start: 20091125
  3. NAPROSYN [Suspect]
     Dosage: 750 MG
     Route: 048
     Dates: end: 20100521
  4. ASPIRIN [Suspect]
     Dosage: 81 MG
     Route: 048
     Dates: end: 20100521

REACTIONS (2)
  - ANAEMIA [None]
  - GASTRIC ULCER [None]
